FAERS Safety Report 7613004-2 (Version None)
Quarter: 2011Q3

REPORT INFORMATION
  Report Type: 
  Country: None (occurrence: None)
  Receive Date: 20110713
  Receipt Date: 20110614
  Transmission Date: 20111222
  Serious: No
  Sender: FDA-Public Use
  Company Number: US-005551

PATIENT
  Age: 83 Year
  Sex: Male
  Weight: 88.4514 kg

DRUGS (7)
  1. METFORMIN HCL [Concomitant]
  2. OXYBUTIN [Concomitant]
  3. LEVODOPA [Concomitant]
  4. DEGARELIX 80 MG [Suspect]
     Indication: PROSTATE CANCER
     Dosage: (SUBCUTANEOUS)
     Route: 058
     Dates: start: 20110515
  5. CARBIDOPA [Concomitant]
  6. FINASTERIDE [Concomitant]
  7. SIMVASTATIN [Concomitant]

REACTIONS (3)
  - INJECTION SITE ERYTHEMA [None]
  - INJECTION SITE SWELLING [None]
  - INJECTION SITE INDURATION [None]
